FAERS Safety Report 13675346 (Version 1)
Quarter: 2017Q2

REPORT INFORMATION
  Report Type: Spontaneous
  Country: DE (occurrence: DE)
  Receive Date: 20170621
  Receipt Date: 20170621
  Transmission Date: 20170830
  Serious: Yes (Hospitalization, Other)
  Sender: FDA-Public Use
  Company Number: DE-DEPOMED, INC.-DE-2017DEP001281

PATIENT

DRUGS (63)
  1. TAPENTADOL HYDROCHLORIDE [Suspect]
     Active Substance: TAPENTADOL HYDROCHLORIDE
     Indication: INTERVERTEBRAL DISC DISORDER
  2. FENTANYL. [Suspect]
     Active Substance: FENTANYL
     Indication: OSTEOPOROSIS
     Dosage: UNK
  3. FENTANYL. [Suspect]
     Active Substance: FENTANYL
     Indication: HEADACHE
  4. BUPRENORPHINE. [Suspect]
     Active Substance: BUPRENORPHINE
     Indication: TRAUMATIC FRACTURE
  5. BUPRENORPHINE. [Suspect]
     Active Substance: BUPRENORPHINE
     Indication: BACK PAIN
  6. BUPRENORPHINE. [Suspect]
     Active Substance: BUPRENORPHINE
     Indication: INTERVERTEBRAL DISC DISORDER
  7. BUPRENORPHINE. [Suspect]
     Active Substance: BUPRENORPHINE
     Indication: CANCER PAIN
  8. BUPRENORPHINE. [Suspect]
     Active Substance: BUPRENORPHINE
     Indication: HEADACHE
  9. MORPHINE [Suspect]
     Active Substance: MORPHINE
     Indication: OSTEOPOROSIS
     Dosage: UNK
  10. MORPHINE [Suspect]
     Active Substance: MORPHINE
     Indication: HEADACHE
  11. HYDROMORPHONE [Suspect]
     Active Substance: HYDROMORPHONE
     Indication: TRAUMATIC FRACTURE
  12. OXYCODONE [Suspect]
     Active Substance: OXYCODONE
     Indication: NEURALGIA
  13. NALOXONE W/OXYCODONE [Suspect]
     Active Substance: NALOXONE HYDROCHLORIDE\OXYCODONE HYDROCHLORIDE
     Indication: CANCER PAIN
  14. NALOXONE W/OXYCODONE [Suspect]
     Active Substance: NALOXONE HYDROCHLORIDE\OXYCODONE HYDROCHLORIDE
     Indication: HEADACHE
  15. FENTANYL. [Suspect]
     Active Substance: FENTANYL
     Indication: CANCER PAIN
  16. HYDROMORPHONE [Suspect]
     Active Substance: HYDROMORPHONE
     Indication: NEURALGIA
  17. HYDROMORPHONE [Suspect]
     Active Substance: HYDROMORPHONE
     Indication: INTERVERTEBRAL DISC DISORDER
  18. OXYCODONE [Suspect]
     Active Substance: OXYCODONE
     Indication: MULTIMORBIDITY
  19. OXYCODONE [Suspect]
     Active Substance: OXYCODONE
     Indication: INTERVERTEBRAL DISC DISORDER
  20. OXYCODONE [Suspect]
     Active Substance: OXYCODONE
     Indication: OSTEOARTHRITIS
  21. NALOXONE W/OXYCODONE [Suspect]
     Active Substance: NALOXONE HYDROCHLORIDE\OXYCODONE HYDROCHLORIDE
     Indication: BACK PAIN
  22. TAPENTADOL HYDROCHLORIDE [Suspect]
     Active Substance: TAPENTADOL HYDROCHLORIDE
     Indication: NEURALGIA
  23. TAPENTADOL HYDROCHLORIDE [Suspect]
     Active Substance: TAPENTADOL HYDROCHLORIDE
     Indication: CANCER PAIN
  24. FENTANYL. [Suspect]
     Active Substance: FENTANYL
     Indication: TRAUMATIC FRACTURE
  25. FENTANYL. [Suspect]
     Active Substance: FENTANYL
     Indication: INTERVERTEBRAL DISC DISORDER
  26. MORPHINE [Suspect]
     Active Substance: MORPHINE
     Indication: TRAUMATIC FRACTURE
  27. HYDROMORPHONE [Suspect]
     Active Substance: HYDROMORPHONE
     Indication: OSTEOPOROSIS
     Dosage: UNK
  28. HYDROMORPHONE [Suspect]
     Active Substance: HYDROMORPHONE
     Indication: CANCER PAIN
  29. OXYCODONE [Suspect]
     Active Substance: OXYCODONE
     Indication: OSTEOPOROSIS
     Dosage: UNK
  30. TAPENTADOL HYDROCHLORIDE [Suspect]
     Active Substance: TAPENTADOL HYDROCHLORIDE
     Indication: MULTIMORBIDITY
  31. TAPENTADOL HYDROCHLORIDE [Suspect]
     Active Substance: TAPENTADOL HYDROCHLORIDE
     Indication: TRAUMATIC FRACTURE
  32. TAPENTADOL HYDROCHLORIDE [Suspect]
     Active Substance: TAPENTADOL HYDROCHLORIDE
     Indication: HEADACHE
  33. FENTANYL. [Suspect]
     Active Substance: FENTANYL
     Indication: MULTIMORBIDITY
  34. FENTANYL. [Suspect]
     Active Substance: FENTANYL
     Indication: NEURALGIA
  35. FENTANYL. [Suspect]
     Active Substance: FENTANYL
     Indication: OSTEOARTHRITIS
  36. BUPRENORPHINE. [Suspect]
     Active Substance: BUPRENORPHINE
     Indication: MULTIMORBIDITY
  37. BUPRENORPHINE. [Suspect]
     Active Substance: BUPRENORPHINE
     Indication: OSTEOARTHRITIS
  38. MORPHINE [Suspect]
     Active Substance: MORPHINE
     Indication: NEURALGIA
  39. MORPHINE [Suspect]
     Active Substance: MORPHINE
     Indication: CANCER PAIN
  40. HYDROMORPHONE [Suspect]
     Active Substance: HYDROMORPHONE
     Indication: MULTIMORBIDITY
  41. HYDROMORPHONE [Suspect]
     Active Substance: HYDROMORPHONE
     Indication: OSTEOARTHRITIS
  42. OXYCODONE [Suspect]
     Active Substance: OXYCODONE
     Indication: TRAUMATIC FRACTURE
  43. OXYCODONE [Suspect]
     Active Substance: OXYCODONE
     Indication: BACK PAIN
  44. OXYCODONE [Suspect]
     Active Substance: OXYCODONE
     Indication: HEADACHE
  45. NALOXONE W/OXYCODONE [Suspect]
     Active Substance: NALOXONE HYDROCHLORIDE\OXYCODONE HYDROCHLORIDE
     Indication: NEURALGIA
  46. TAPENTADOL HYDROCHLORIDE [Suspect]
     Active Substance: TAPENTADOL HYDROCHLORIDE
     Indication: BACK PAIN
  47. TAPENTADOL HYDROCHLORIDE [Suspect]
     Active Substance: TAPENTADOL HYDROCHLORIDE
     Indication: OSTEOARTHRITIS
  48. BUPRENORPHINE. [Suspect]
     Active Substance: BUPRENORPHINE
     Indication: NEURALGIA
  49. MORPHINE [Suspect]
     Active Substance: MORPHINE
     Indication: INTERVERTEBRAL DISC DISORDER
  50. HYDROMORPHONE [Suspect]
     Active Substance: HYDROMORPHONE
     Indication: BACK PAIN
  51. NALOXONE W/OXYCODONE [Suspect]
     Active Substance: NALOXONE HYDROCHLORIDE\OXYCODONE HYDROCHLORIDE
     Indication: OSTEOPOROSIS
     Dosage: UNK
  52. TAPENTADOL HYDROCHLORIDE [Suspect]
     Active Substance: TAPENTADOL HYDROCHLORIDE
     Indication: OSTEOPOROSIS
     Dosage: UNK
  53. FENTANYL. [Suspect]
     Active Substance: FENTANYL
     Indication: BACK PAIN
  54. BUPRENORPHINE. [Suspect]
     Active Substance: BUPRENORPHINE
     Indication: OSTEOPOROSIS
     Dosage: UNK
  55. MORPHINE [Suspect]
     Active Substance: MORPHINE
     Indication: BACK PAIN
  56. MORPHINE [Suspect]
     Active Substance: MORPHINE
     Indication: OSTEOARTHRITIS
  57. HYDROMORPHONE [Suspect]
     Active Substance: HYDROMORPHONE
     Indication: HEADACHE
  58. NALOXONE W/OXYCODONE [Suspect]
     Active Substance: NALOXONE HYDROCHLORIDE\OXYCODONE HYDROCHLORIDE
     Indication: MULTIMORBIDITY
  59. MORPHINE [Suspect]
     Active Substance: MORPHINE
     Indication: MULTIMORBIDITY
  60. OXYCODONE [Suspect]
     Active Substance: OXYCODONE
     Indication: CANCER PAIN
  61. NALOXONE W/OXYCODONE [Suspect]
     Active Substance: NALOXONE HYDROCHLORIDE\OXYCODONE HYDROCHLORIDE
     Indication: TRAUMATIC FRACTURE
  62. NALOXONE W/OXYCODONE [Suspect]
     Active Substance: NALOXONE HYDROCHLORIDE\OXYCODONE HYDROCHLORIDE
     Indication: INTERVERTEBRAL DISC DISORDER
  63. NALOXONE W/OXYCODONE [Suspect]
     Active Substance: NALOXONE HYDROCHLORIDE\OXYCODONE HYDROCHLORIDE
     Indication: OSTEOARTHRITIS

REACTIONS (2)
  - Ischaemic stroke [Unknown]
  - Myocardial infarction [Unknown]
